FAERS Safety Report 14146159 (Version 1)
Quarter: 2017Q4

REPORT INFORMATION
  Report Type: Spontaneous
  Country: DE (occurrence: DE)
  Receive Date: 20171031
  Receipt Date: 20171031
  Transmission Date: 20180321
  Serious: Yes (Other)
  Sender: FDA-Public Use
  Company Number: DE-GLAXOSMITHKLINE-DE2017GSK165342

PATIENT
  Age: 91 Year
  Sex: Female

DRUGS (1)
  1. VOLTAREN [Suspect]
     Active Substance: DICLOFENAC SODIUM
     Indication: OSTEOARTHRITIS
     Dosage: 0.5 DF, QD(46.5 MG HALF TABLET DAILY)
     Route: 065

REACTIONS (3)
  - Wrong technique in product usage process [Unknown]
  - Haemorrhage [Unknown]
  - Neovascular age-related macular degeneration [Unknown]
